FAERS Safety Report 4381107-4 (Version None)
Quarter: 2004Q2

REPORT INFORMATION
  Report Type: 
  Country: None (occurrence: None)
  Receive Date: 20040601
  Receipt Date: 20040414
  Transmission Date: 20050107
  Serious: No
  Sender: FDA-Public Use
  Company Number: FABR-10541

PATIENT
  Age: 36 Year
  Sex: Male
  Weight: 75 kg

DRUGS (4)
  1. FABRAZYME [Suspect]
     Indication: FABRY'S DISEASE
     Dosage: 70 MG Q2WKS IV
     Route: 042
     Dates: start: 20040217
  2. DURAGESIC [Concomitant]
  3. DILAUDID [Concomitant]
  4. MARIJUANA [Concomitant]

REACTIONS (6)
  - CHILLS [None]
  - LACRIMATION INCREASED [None]
  - PAIN IN EXTREMITY [None]
  - PARAESTHESIA [None]
  - RASH [None]
  - VOMITING [None]
